FAERS Safety Report 24314213 (Version 1)
Quarter: 2024Q3

REPORT INFORMATION
  Report Type: Report from Study
  Country: GB (occurrence: GB)
  Receive Date: 20240912
  Receipt Date: 20240912
  Transmission Date: 20241017
  Serious: Yes (Other)
  Sender: ABBVIE
  Company Number: GB-ABBVIE-5909067

PATIENT
  Age: 37 Year
  Sex: Female

DRUGS (1)
  1. SKYRIZI [Suspect]
     Active Substance: RISANKIZUMAB-RZAA
     Indication: Crohn^s disease
     Dosage: FORM STRENGTH: 360 MILLIGRAM
     Route: 058
     Dates: start: 20240415

REACTIONS (4)
  - Central venous catheterisation [Unknown]
  - COVID-19 [Recovered/Resolved]
  - Parenteral nutrition [Unknown]
  - Jejunostomy [Unknown]

NARRATIVE: CASE EVENT DATE: 20240101
